FAERS Safety Report 8541057-6 (Version None)
Quarter: 2012Q3

REPORT INFORMATION
  Report Type: 
  Country: None (occurrence: None)
  Receive Date: 20120726
  Receipt Date: 20110816
  Transmission Date: 20120928
  Serious: No
  Sender: FDA-Public Use
  Company Number: US-ASTRAZENECA-2011SE49386

PATIENT
  Age: 48 Year
  Sex: Female
  Weight: 63.5 kg

DRUGS (5)
  1. LOREZEPAM [Concomitant]
     Indication: MIGRAINE
  2. DIAZEPAM [Concomitant]
     Indication: SLEEP DISORDER
  3. SEROQUEL XR [Suspect]
     Indication: DEPRESSION
     Route: 048
     Dates: start: 20110625, end: 20110701
  4. CELEXA [Concomitant]
     Indication: DEPRESSION
  5. DIAZEPAM [Concomitant]
     Indication: ANXIETY

REACTIONS (7)
  - ANGER [None]
  - BLOOD CHOLESTEROL INCREASED [None]
  - DEPRESSION [None]
  - TREMOR [None]
  - PERSONALITY CHANGE [None]
  - DRUG INEFFECTIVE [None]
  - ANXIETY [None]
